FAERS Safety Report 23623695 (Version 1)
Quarter: 2024Q1

REPORT INFORMATION
  Report Type: Spontaneous
  Country: US (occurrence: None)
  Receive Date: 20240312
  Receipt Date: 20240312
  Transmission Date: 20240410
  Serious: Yes (Other)
  Sender: FDA-Public Use
  Company Number: None

PATIENT
  Age: 10 Year
  Sex: Male
  Weight: 101.9 kg

DRUGS (3)
  1. CALASPARGASE PEGOL [Suspect]
     Active Substance: CALASPARGASE PEGOL
     Indication: Acute lymphocytic leukaemia
     Dosage: OTHER FREQUENCY : ONE TIME;?
     Route: 042
     Dates: start: 20230306, end: 20230424
  2. CALASPARGASE PEGOL [Suspect]
     Active Substance: CALASPARGASE PEGOL
     Indication: Supportive care
  3. CALASPARGASE PEGOL [Concomitant]
     Active Substance: CALASPARGASE PEGOL
     Dates: start: 20230306, end: 20230424

REACTIONS (3)
  - Liver function test increased [None]
  - Therapy interrupted [None]
  - Inappropriate schedule of product administration [None]

NARRATIVE: CASE EVENT DATE: 20230320
